FAERS Safety Report 9255709 (Version 4)
Quarter: 2018Q4

REPORT INFORMATION
  Report Type: Spontaneous
  Country: FR (occurrence: FR)
  Receive Date: 20130425
  Receipt Date: 20181129
  Transmission Date: 20190205
  Serious: Yes (Hospitalization, Disabling, Other)
  Sender: FDA-Public Use
  Company Number: FR-009507513-1304FRA012406

PATIENT
  Age: 49 Year
  Sex: Male
  Weight: 178 kg

DRUGS (14)
  1. CACIT [Concomitant]
     Active Substance: CALCIUM\VITAMIN D
     Indication: CALCIUM DEFICIENCY
     Dosage: 1000 MG, UNK
     Route: 048
  2. COPEGUS [Suspect]
     Active Substance: RIBAVIRIN
     Dosage: 200 MILLIGRAM, QW (ALSO REPORTED AS TIW)
     Route: 048
     Dates: start: 201107, end: 20130408
  3. AMLOR [Concomitant]
     Active Substance: AMLODIPINE BESYLATE
     Indication: HYPERTENSION
     Dosage: 5 MG, UNK
     Route: 048
  4. MICARDIS [Concomitant]
     Active Substance: TELMISARTAN
     Indication: HYPERTENSION
     Dosage: UNK
  5. FERINJECT [Concomitant]
     Active Substance: FERRIC CARBOXYMALTOSE
     Indication: IRON DEFICIENCY ANAEMIA
     Dosage: UNK
  6. VICTRELIS [Suspect]
     Active Substance: BOCEPREVIR
     Indication: HEPATITIS C
     Dosage: 4 DF, TID (ALSO REPORTED AS QD)
     Route: 048
     Dates: start: 20120101, end: 20130408
  7. COPEGUS [Suspect]
     Active Substance: RIBAVIRIN
     Indication: HEPATITIS C
     Dosage: 3 DOSAGE FORM, QD
     Route: 048
     Dates: start: 201107, end: 20130408
  8. EPREX [Suspect]
     Active Substance: ERYTHROPOIETIN
     Indication: ANAEMIA
     Dosage: 10000 INTERNATIONAL UNIT, UNK
     Route: 058
  9. PEGASYS [Suspect]
     Active Substance: PEGINTERFERON ALFA-2A
     Indication: HEPATITIS C
     Dosage: 180 MICROGRAM, QW
     Route: 058
     Dates: start: 201107, end: 20130408
  10. SELECTOL [Concomitant]
     Active Substance: CELIPROLOL
     Indication: HYPERTENSION
     Dosage: 200 MG, UNK
     Route: 048
  11. CORTANCYL [Concomitant]
     Active Substance: PREDNISONE
     Indication: RENAL FAILURE
     Dosage: 5 MG, UNK
     Route: 048
  12. RENAGEL [Concomitant]
     Active Substance: SEVELAMER HYDROCHLORIDE
     Indication: HYPERTENSION
     Dosage: 800 MG, UNK
  13. LASILIX [Concomitant]
     Active Substance: FUROSEMIDE
     Indication: RENAL FAILURE
     Dosage: 250 MG, BID (ALSO REPORTED AS QD)
  14. TAHOR [Concomitant]
     Active Substance: ATORVASTATIN CALCIUM
     Indication: HYPERCHOLESTEROLAEMIA
     Dosage: 20 MG, UNK
     Route: 048

REACTIONS (3)
  - Tinnitus [Not Recovered/Not Resolved]
  - Sudden hearing loss [Recovering/Resolving]
  - Ear pain [Recovered/Resolved]

NARRATIVE: CASE EVENT DATE: 20130408
